FAERS Safety Report 9056772 (Version 1)
Quarter: 2013Q1

REPORT INFORMATION
  Report Type: Spontaneous
  Country: US (occurrence: US)
  Receive Date: 20130201
  Receipt Date: 20130201
  Transmission Date: 20140127
  Serious: Yes (Other)
  Sender: FDA-Public Use
  Company Number: PHEH2013US002539

PATIENT
  Sex: Female

DRUGS (10)
  1. RECLAST [Suspect]
     Dosage: 5MG/100ML ONCE PER YEAR
     Route: 042
  2. RECLAST [Suspect]
     Dosage: 5MG/100ML ONCE PER YEAR
     Route: 042
  3. ACTONEL [Suspect]
  4. BONIVA [Suspect]
  5. FOSAMAX [Suspect]
  6. COQ10 [Concomitant]
  7. CALCIUM [Concomitant]
  8. CENTRUM SILVER [Concomitant]
  9. VITAMIN D [Concomitant]
  10. MAGNESIUM [Concomitant]

REACTIONS (3)
  - Gastrooesophageal reflux disease [Unknown]
  - Sleep disorder [Unknown]
  - Gastrointestinal inflammation [Unknown]
